FAERS Safety Report 8494778-8 (Version None)
Quarter: 2012Q3

REPORT INFORMATION
  Report Type: 
  Country: None (occurrence: None)
  Receive Date: 20120709
  Receipt Date: 20120628
  Transmission Date: 20120928
  Serious: Yes (Life-Threatening, Other)
  Sender: FDA-Public Use
  Company Number: CA-JNJFOC-20120510614

PATIENT
  Sex: Female
  Weight: 39.4 kg

DRUGS (9)
  1. IMURAN [Concomitant]
     Route: 065
  2. REMICADE [Suspect]
     Route: 042
     Dates: start: 20120619
  3. WARFARIN SODIUM [Concomitant]
     Route: 065
  4. MULTI-VITAMINS [Concomitant]
     Route: 065
  5. REMICADE [Suspect]
     Dosage: 4 INFUSIONS
     Route: 042
     Dates: start: 20050101
  6. MORPHINE [Concomitant]
     Route: 065
  7. REMICADE [Suspect]
     Indication: CROHN'S DISEASE
     Dosage: 1ST LOADING DOSE
     Route: 042
     Dates: start: 20120427
  8. REMICADE [Suspect]
     Dosage: 2ND LOADING DOSE. AROUND 22 ML WAS INFUSED
     Route: 042
     Dates: start: 20120510
  9. CALCIUM [Concomitant]
     Route: 065

REACTIONS (15)
  - ERYTHEMA [None]
  - DYSPNOEA [None]
  - CHEST DISCOMFORT [None]
  - PALLOR [None]
  - FEELING HOT [None]
  - FEELING COLD [None]
  - SOMNOLENCE [None]
  - TREMOR [None]
  - HEADACHE [None]
  - PALPITATIONS [None]
  - INFUSION RELATED REACTION [None]
  - HEART RATE INCREASED [None]
  - BACK PAIN [None]
  - NAUSEA [None]
  - VOMITING [None]
